FAERS Safety Report 8340397-3 (Version None)
Quarter: 2012Q2

REPORT INFORMATION
  Report Type: 
  Country: None (occurrence: None)
  Receive Date: 20120507
  Receipt Date: 20090707
  Transmission Date: 20120825
  Serious: Yes (Other)
  Sender: FDA-Public Use
  Company Number: US-TEVA-2009007047

PATIENT
  Sex: Female
  Weight: 90.346 kg

DRUGS (7)
  1. SPORANOX [Concomitant]
  2. TREANDA [Suspect]
     Indication: CHRONIC LYMPHOCYTIC LEUKAEMIA
     Dosage: 139 MILLIGRAM;
     Route: 042
     Dates: start: 20090224, end: 20090429
  3. ALLOPURINOL [Suspect]
  4. XANAX [Concomitant]
  5. GAMUNEX [Concomitant]
  6. RITUXAN [Concomitant]
  7. VALTREX [Concomitant]

REACTIONS (1)
  - TOXIC EPIDERMAL NECROLYSIS [None]
